FAERS Safety Report 13456472 (Version 1)
Quarter: 2017Q2

REPORT INFORMATION
  Report Type: Spontaneous
  Country: US (occurrence: US)
  Receive Date: 20170419
  Receipt Date: 20170419
  Transmission Date: 20170830
  Serious: Yes (Other)
  Sender: FDA-Public Use
  Company Number: None

PATIENT
  Age: 77 Year
  Sex: Female
  Weight: 104.33 kg

DRUGS (6)
  1. NIFEDIPINE TAB 30MG CC [Suspect]
     Active Substance: NIFEDIPINE
     Indication: RENAL FAILURE
     Dosage: FREQUENCY - QD - EITHER 1 HR BEFORE OR 2 HRS AFTER MEAL
     Route: 048
     Dates: start: 20170320, end: 20170331
  2. FOLIC ACID. [Concomitant]
     Active Substance: FOLIC ACID
  3. COREG [Concomitant]
     Active Substance: CARVEDILOL
  4. NIFEDIPINE. [Concomitant]
     Active Substance: NIFEDIPINE
  5. WOMEN^S ONE-A-DAY VITAMINS [Concomitant]
  6. NEBULIZER [Concomitant]
     Active Substance: DEVICE

REACTIONS (7)
  - Intestinal obstruction [None]
  - Fatigue [None]
  - Constipation [None]
  - Muscle spasms [None]
  - Decreased appetite [None]
  - Renal pain [None]
  - Musculoskeletal stiffness [None]

NARRATIVE: CASE EVENT DATE: 20170320
